FAERS Safety Report 9152413 (Version 1)
Quarter: 2013Q1

REPORT INFORMATION
  Report Type: Spontaneous
  Country: GB (occurrence: GB)
  Receive Date: 20130308
  Receipt Date: 20130308
  Transmission Date: 20140127
  Serious: Yes (Hospitalization, Other)
  Sender: FDA-Public Use
  Company Number: GB-ELI_LILLY_AND_COMPANY-GB201302008698

PATIENT
  Age: 27 Year
  Sex: Male
  Weight: 82.55 kg

DRUGS (6)
  1. CYMBALTA [Suspect]
     Indication: DEPRESSION
     Dosage: 120 MG, UNKNOWN
     Route: 048
     Dates: start: 2012, end: 201302
  2. CLOZAPINE [Interacting]
     Indication: PSYCHOTIC DISORDER
     Dosage: 250 MG, QD
     Route: 048
     Dates: start: 20121212
  3. NICOTINE [Concomitant]
     Dosage: UNK, UNKNOWN
     Route: 065
  4. OLANZAPINE [Concomitant]
     Dosage: UNK, UNKNOWN
     Route: 065
  5. SALBUTAMOL [Concomitant]
     Dosage: UNK, UNKNOWN
     Route: 065
  6. ZOPICLONE [Concomitant]
     Dosage: UNK, UNKNOWN
     Route: 065

REACTIONS (3)
  - Drug level increased [Recovering/Resolving]
  - Somnolence [Unknown]
  - Drug interaction [Unknown]
